FAERS Safety Report 8593420-5 (Version None)
Quarter: 2012Q3

REPORT INFORMATION
  Report Type: 
  Country: None (occurrence: None)
  Receive Date: 20120814
  Receipt Date: 20120803
  Transmission Date: 20120928
  Serious: Yes (Death)
  Sender: FDA-Public Use
  Company Number: LB-CELGENEUS-093-20785-12070537

PATIENT
  Age: 76 Year
  Sex: Female

DRUGS (4)
  1. PAMIDRONATE DISODIUM [Concomitant]
     Route: 065
  2. THALIDOMIDE [Suspect]
     Indication: MULTIPLE MYELOMA
     Dosage: 200 MILLIGRAM
     Route: 048
     Dates: start: 20090401, end: 20120501
  3. PREDNISONE TAB [Concomitant]
     Route: 065
  4. MELPHALAN HYDROCHLORIDE [Concomitant]
     Route: 065

REACTIONS (2)
  - RENAL FAILURE [None]
  - HEPATIC FAILURE [None]
